FAERS Safety Report 7402724-0 (Version None)
Quarter: 2011Q2

REPORT INFORMATION
  Report Type: 
  Country: None (occurrence: None)
  Receive Date: 20110408
  Receipt Date: 20110330
  Transmission Date: 20111010
  Serious: Yes (Hospitalization)
  Sender: FDA-Public Use
  Company Number: IT-ROCHE-749510

PATIENT
  Sex: Male
  Weight: 83 kg

DRUGS (4)
  1. BLINDED BEVACIZUMAB [Suspect]
     Indication: GLIOBLASTOMA
     Dosage: LAST DOSE PRIOR TO SAE: 18 NOVEMBER 2010. PATIENT WAS EXCLUDED FROM THE STUDY ON 01 DECEMBER 2010.
     Route: 042
     Dates: start: 20100408, end: 20101118
  2. TEMOZOLOMIDE [Suspect]
     Indication: GLIOBLASTOMA
     Dosage: FREQUENCY: MONTHLY. LAST DOSE PRIOR TO SAE: 8 NOV 2010; PATIENT EXCLUDED FROM STUDY ON 01 DEC 2010.
     Route: 048
     Dates: start: 20100408, end: 20101108
  3. TEMODAL [Concomitant]
     Dates: start: 20101202, end: 20101216
  4. ENALAPRIL MALEATE [Concomitant]
     Dates: start: 20100929, end: 20101116

REACTIONS (12)
  - NEOPLASM MALIGNANT [None]
  - UNEVALUABLE EVENT [None]
  - GLIOBLASTOMA MULTIFORME [None]
  - CONVULSION [None]
  - APHASIA [None]
  - DISORIENTATION [None]
  - HYPOKALAEMIA [None]
  - PARTIAL SEIZURES [None]
  - MONOPLEGIA [None]
  - HYPONATRAEMIA [None]
  - BRAIN OEDEMA [None]
  - ANTICONVULSANT DRUG LEVEL DECREASED [None]
